FAERS Safety Report 7463591-2 (Version None)
Quarter: 2011Q2

REPORT INFORMATION
  Report Type: 
  Country: None (occurrence: None)
  Receive Date: 20110506
  Receipt Date: 20110426
  Transmission Date: 20111010
  Serious: Yes (Life-Threatening, Hospitalization)
  Sender: FDA-Public Use
  Company Number: FR-SANOFI-AVENTIS-2011SA025695

PATIENT
  Age: 56 Year
  Sex: Male

DRUGS (5)
  1. AMARYL [Suspect]
     Route: 048
  2. RAMIPRIL [Suspect]
     Route: 048
  3. METFFORMIN HYDROCHLORIDE [Suspect]
     Dosage: DOSE:2 UNIT(S)
     Route: 048
     Dates: start: 20101220, end: 20110119
  4. AMLODIPINE BESYLATE [Suspect]
     Route: 048
  5. ROSIGLITAZONE [Concomitant]

REACTIONS (2)
  - GLOMERULONEPHRITIS ACUTE [None]
  - VASCULAR PURPURA [None]
